FAERS Safety Report 10931626 (Version 1)
Quarter: 2015Q1

REPORT INFORMATION
  Report Type: Spontaneous
  Country: US (occurrence: US)
  Receive Date: 20150319
  Receipt Date: 20150319
  Transmission Date: 20150721
  Serious: No
  Sender: FDA-Public Use
  Company Number: US-BAUSCH-BL-2014-004641

PATIENT
  Sex: Female

DRUGS (2)
  1. RETIN-A [Suspect]
     Active Substance: TRETINOIN
     Indication: PIGMENTATION DISORDER
  2. RETIN-A [Suspect]
     Active Substance: TRETINOIN
     Indication: ACNE
     Route: 061
     Dates: start: 2014

REACTIONS (1)
  - Sunburn [Not Recovered/Not Resolved]

NARRATIVE: CASE EVENT DATE: 2014
